FAERS Safety Report 10452692 (Version 1)
Quarter: 2014Q3

REPORT INFORMATION
  Report Type: Spontaneous
  Country: US (occurrence: US)
  Receive Date: 20140915
  Receipt Date: 20140915
  Transmission Date: 20150326
  Serious: Yes (Hospitalization)
  Sender: FDA-Public Use
  Company Number: US-AMGEN-USASP2014069121

PATIENT
  Age: 70 Year
  Sex: Male

DRUGS (6)
  1. TACROLIMUS. [Concomitant]
     Active Substance: TACROLIMUS
     Dosage: UNK
  2. BACTRIM [Concomitant]
     Active Substance: SULFAMETHOXAZOLE\TRIMETHOPRIM
     Dosage: UNK
  3. ASA [Concomitant]
     Active Substance: ASPIRIN
     Dosage: UNK
  4. NEULASTA [Suspect]
     Active Substance: PEGFILGRASTIM
     Indication: LEUKOPENIA
     Dosage: UNK
     Route: 065
     Dates: start: 20140814
  5. PREDNISONE. [Concomitant]
     Active Substance: PREDNISONE
     Dosage: UNK
  6. DACLATASVIR [Concomitant]
     Active Substance: DACLATASVIR
     Indication: HEPATITIS C
     Dosage: 60 MG, 1 DAY
     Route: 048
     Dates: start: 20140527

REACTIONS (2)
  - Chest pain [Recovered/Resolved]
  - Palpitations [Recovered/Resolved]

NARRATIVE: CASE EVENT DATE: 20140816
